FAERS Safety Report 7879952 (Version 3)
Quarter: 2013Q1

REPORT INFORMATION
  Report Type: Spontaneous
  Country: US (occurrence: US)
  Receive Date: 20110331
  Receipt Date: 20130303
  Transmission Date: 20140127
  Serious: Yes (Hospitalization)
  Sender: FDA-Public Use
  Company Number: US-US-EMD SERONO, INC.-7049901

PATIENT
  Sex: Male
  Weight: 108 kg

DRUGS (4)
  1. REBIF [Suspect]
     Indication: MULTIPLE SCLEROSIS
     Dates: start: 2004
  2. REBIF [Suspect]
     Route: 058
     Dates: start: 20110212, end: 201211
  3. REBIF [Suspect]
     Route: 058
     Dates: start: 20130215
  4. UNSPECIFIED ALLERGY MEDICATION [Concomitant]

REACTIONS (3)
  - Cardiac failure congestive [Recovered/Resolved]
  - Cardiomegaly [Unknown]
  - Myalgia [Unknown]
